FAERS Safety Report 4850525-X (Version None)
Quarter: 2005Q4

REPORT INFORMATION
  Report Type: 
  Country: None (occurrence: None)
  Receive Date: 20051208
  Receipt Date: 20050906
  Transmission Date: 20060501
  Serious: Yes (Death, Other)
  Sender: FDA-Public Use
  Company Number: 2005092708

PATIENT
  Age: 49 Year
  Sex: Male
  Weight: 67 kg

DRUGS (7)
  1. VIAGRA [Suspect]
     Indication: ILL-DEFINED DISORDER
     Dosage: ORAL
     Route: 048
     Dates: end: 20050601
  2. LEVITRA [Suspect]
     Indication: ILL-DEFINED DISORDER
     Dates: end: 20050101
  3. COVEREX (PERINDOPRIL) [Concomitant]
  4. CHINOTAL (PENTOXIFYLLINE) [Concomitant]
  5. DIGOXIN [Concomitant]
  6. CARVEDILOL [Concomitant]
  7. TEGRETOL [Concomitant]

REACTIONS (5)
  - CEREBROVASCULAR ACCIDENT [None]
  - MYOCARDIAL INFARCTION [None]
  - PULMONARY EMBOLISM [None]
  - RENAL FAILURE [None]
  - SELF-MEDICATION [None]
